FAERS Safety Report 6908009-0 (Version None)
Quarter: 2010Q3

REPORT INFORMATION
  Report Type: 
  Country: None (occurrence: None)
  Receive Date: 20100805
  Receipt Date: 20100725
  Transmission Date: 20110219
  Serious: Yes (Hospitalization)
  Sender: FDA-Public Use
  Company Number: IL-ELI_LILLY_AND_COMPANY-IL201008000221

PATIENT
  Age: 79 Year
  Sex: Female

DRUGS (2)
  1. FORTEO [Suspect]
     Indication: OSTEOPOROSIS
     Dosage: UNK UNK, UNKNOWN
     Dates: start: 20091001, end: 20100723
  2. CORTICOSTEROIDS [Concomitant]
     Dosage: UNK UNK, UNKNOWN

REACTIONS (2)
  - INCORRECT STORAGE OF DRUG [None]
  - LIMB INJURY [None]
